FAERS Safety Report 10044438 (Version 1)
Quarter: 2014Q1

REPORT INFORMATION
  Report Type: Spontaneous
  Country: BE (occurrence: None)
  Receive Date: 20140326
  Receipt Date: 20140326
  Transmission Date: 20141002
  Serious: Yes (Life-Threatening, Hospitalization)
  Sender: FDA-Public Use
  Company Number: 2014/017

PATIENT
  Age: 81 Year
  Sex: Male

DRUGS (2)
  1. VENLAFAXINE [Suspect]
     Dosage: 150 MG/DAY, UNK + UNK?
  2. ESCITALOPRAM [Suspect]
     Dosage: 10 MG/DAY, UNK + UNK

REACTIONS (10)
  - Peritonitis [None]
  - Appendicitis perforated [None]
  - Ileus [None]
  - Pyrexia [None]
  - Altered state of consciousness [None]
  - Hypertonia [None]
  - Hyperreflexia [None]
  - Myoclonus [None]
  - Pneumonia [None]
  - Hallucination [None]
